FAERS Safety Report 9280871 (Version 1)
Quarter: 2013Q2

REPORT INFORMATION
  Report Type: Spontaneous
  Country: CM (occurrence: None)
  Receive Date: 20130503
  Receipt Date: 20130503
  Transmission Date: 20140414
  Serious: Yes (Hospitalization, Disabling)
  Sender: FDA-Public Use
  Company Number: 2013P1005184

PATIENT
  Age: 38 Year
  Sex: Male

DRUGS (4)
  1. ALBENDAZOLE [Suspect]
     Indication: FILARIASIS LYMPHATIC
     Dates: start: 20120713
  2. ALBENDAZOLE [Suspect]
     Indication: ONCHOCERCIASIS
     Dates: start: 20120713
  3. MECTIZAN [Suspect]
     Indication: FILARIASIS LYMPHATIC
  4. MECTIZAN [Suspect]
     Indication: ONCHOCERCIASIS

REACTIONS (10)
  - Coma [None]
  - Asthenia [None]
  - Pruritus [None]
  - Pyrexia [None]
  - Vertigo [None]
  - Ocular hyperaemia [None]
  - Gait disturbance [None]
  - Headache [None]
  - Alcohol poisoning [None]
  - Encephalopathy [None]
